FAERS Safety Report 13402616 (Version 4)
Quarter: 2017Q3

REPORT INFORMATION
  Report Type: Report from Study
  Country: US (occurrence: US)
  Receive Date: 20170404
  Receipt Date: 20170901
  Transmission Date: 20171127
  Serious: Yes (Hospitalization, Other)
  Sender: FDA-Public Use
  Company Number: US-ACTELION-A-NJ2017-151223

PATIENT
  Age: 58 Year
  Sex: Female
  Weight: 66.21 kg

DRUGS (3)
  1. VELETRI [Suspect]
     Active Substance: EPOPROSTENOL
     Indication: PULMONARY HYPERTENSION
     Dosage: 17.25 NG/KG, PER MIN
     Route: 042
  2. VELETRI [Suspect]
     Active Substance: EPOPROSTENOL
     Dosage: 17.75 NG/KG, PER MIN
     Route: 042
  3. WARFARIN [Concomitant]
     Active Substance: WARFARIN

REACTIONS (9)
  - Rash [Unknown]
  - Neoplasm malignant [Unknown]
  - Contusion [Unknown]
  - Abdominal pain [Unknown]
  - Back pain [Unknown]
  - Sickle cell anaemia with crisis [Unknown]
  - Mammogram abnormal [Unknown]
  - Musculoskeletal pain [Unknown]
  - Dermatitis contact [Unknown]
